FAERS Safety Report 5070176-4 (Version None)
Quarter: 2006Q3

REPORT INFORMATION
  Report Type: 
  Country: None (occurrence: None)
  Receive Date: 20060714
  Receipt Date: 20060411
  Transmission Date: 20061208
  Serious: No
  Sender: FDA-Public Use
  Company Number: 2006SP001642

PATIENT
  Age: 43 Year
  Sex: Male
  Weight: 130.6359 kg

DRUGS (9)
  1. LUNESTA [Suspect]
     Indication: INSOMNIA
     Dosage: 2 MG;1X; ORAL
     Route: 048
     Dates: start: 20060410, end: 20060410
  2. TENORMIN [Concomitant]
  3. PRINIVIL [Concomitant]
  4. DIAZIDE [Concomitant]
  5. PREVACID [Concomitant]
  6. TRICOR [Concomitant]
  7. KLONOPIN [Concomitant]
  8. SEROQUEL [Concomitant]
  9. LEXAPRO [Concomitant]

REACTIONS (2)
  - HEART RATE IRREGULAR [None]
  - INSOMNIA [None]
